FAERS Safety Report 12535462 (Version 2)
Quarter: 2016Q3

REPORT INFORMATION
  Report Type: Report from Study
  Country: IT (occurrence: IT)
  Receive Date: 20160707
  Receipt Date: 20160825
  Transmission Date: 20161109
  Serious: Yes (Other)
  Sender: FDA-Public Use
  Company Number: PHHY2016IT092591

PATIENT

DRUGS (1)
  1. TASIGNA [Suspect]
     Active Substance: NILOTINIB
     Indication: PRODUCT USED FOR UNKNOWN INDICATION
     Dosage: UNK
     Route: 065
     Dates: start: 201003, end: 201211

REACTIONS (6)
  - Myocardial infarction [Unknown]
  - Pallor [Unknown]
  - Fatigue [Unknown]
  - Chest discomfort [Unknown]
  - Hyperhidrosis [Unknown]
  - Dyspnoea [Unknown]
